FAERS Safety Report 11044020 (Version 1)
Quarter: 2015Q2

REPORT INFORMATION
  Report Type: Spontaneous
  Country: CA (occurrence: CA)
  Receive Date: 20150417
  Receipt Date: 20150417
  Transmission Date: 20150821
  Serious: Yes (Other)
  Sender: FDA-Public Use
  Company Number: CA-TEVA-555118ACC

PATIENT
  Age: 25 Year
  Sex: Female
  Weight: 87 kg

DRUGS (1)
  1. OLANZAPINE ODT [Suspect]
     Active Substance: OLANZAPINE
     Indication: SCHIZOPHRENIA
     Dosage: 10 MILLIGRAM DAILY;
     Route: 060

REACTIONS (3)
  - Condition aggravated [Unknown]
  - Drug ineffective [Unknown]
  - Psychotic disorder [Unknown]
